FAERS Safety Report 5216652-2 (Version None)
Quarter: 2007Q1

REPORT INFORMATION
  Report Type: 
  Country: None (occurrence: None)
  Receive Date: 20061130
  Receipt Date: 20060616
  Transmission Date: 20070707
  Serious: Yes (Other)
  Sender: FDA-Public Use
  Company Number: US200606004170

PATIENT
  Age: 30 Year
  Sex: Male
  Weight: 133.3 kg

DRUGS (3)
  1. ZYPREXA [Suspect]
     Indication: BIPOLAR I DISORDER
     Dosage: SEE IMAGE
     Dates: start: 19980601
  2. ZYPREXA [Suspect]
     Indication: BIPOLAR I DISORDER
     Dosage: SEE IMAGE
     Dates: start: 19980601
  3. DEPAKOTE [Concomitant]

REACTIONS (4)
  - ALOPECIA [None]
  - BLOOD PRESSURE INCREASED [None]
  - CHEST PAIN [None]
  - WEIGHT INCREASED [None]
